FAERS Safety Report 11481732 (Version 1)
Quarter: 2015Q3

REPORT INFORMATION
  Report Type: Spontaneous
  Country: US (occurrence: US)
  Receive Date: 20150909
  Receipt Date: 20150909
  Transmission Date: 20151125
  Serious: No
  Sender: FDA-Public Use
  Company Number: US-TAKEDA-2015TUS001514

PATIENT
  Age: 63 Year
  Sex: Male
  Weight: 111.11 kg

DRUGS (9)
  1. ACTOS [Suspect]
     Active Substance: PIOGLITAZONE HYDROCHLORIDE
     Dosage: 1 TABLET, QD
     Route: 048
     Dates: start: 20150129
  2. FLOMAX [Concomitant]
     Active Substance: TAMSULOSIN HYDROCHLORIDE
     Indication: PROSTATOMEGALY
     Dosage: 1 CAPSULE EVERY DAY HALF HOUR FOLLOWING THE SAME MEAL EACH DAY
     Route: 048
     Dates: start: 20140701, end: 20150129
  3. ALTACE [Concomitant]
     Active Substance: RAMIPRIL
     Indication: HYPERTENSION
     Dosage: 1 CAPSULE, QD  (AT LEAST 5 YEARS OR MORE)
     Route: 048
     Dates: start: 20140701, end: 20150129
  4. FLOMAX [Concomitant]
     Active Substance: TAMSULOSIN HYDROCHLORIDE
     Dosage: 1 CAPSULE EVERY DAY HALF HOUR FOLLOWING THE SAME MEAL EACH DAY
     Route: 048
     Dates: start: 20150129
  5. ACTOS [Suspect]
     Active Substance: PIOGLITAZONE HYDROCHLORIDE
     Indication: TYPE 2 DIABETES MELLITUS
     Dosage: 1 TABLET, QD
     Route: 048
     Dates: start: 20140601, end: 20150129
  6. ALTACE [Concomitant]
     Active Substance: RAMIPRIL
     Dosage: 1 CAPSULE, QD  (AT LEAST 5 YEARS OR MORE)
     Route: 048
     Dates: start: 20150129
  7. ALLOPURINOL. [Concomitant]
     Active Substance: ALLOPURINOL
     Indication: BLOOD URIC ACID INCREASED
     Dosage: 1 TABLET, QD
     Route: 048
     Dates: start: 20140311, end: 20150129
  8. ALLOPURINOL. [Concomitant]
     Active Substance: ALLOPURINOL
     Dosage: 1 TABLET, QD
     Route: 048
     Dates: start: 20150129
  9. METFORMIN [Concomitant]
     Active Substance: METFORMIN HYDROCHLORIDE
     Indication: TYPE 2 DIABETES MELLITUS
     Dosage: 1 DF, QD
     Dates: start: 20140226, end: 20140701

REACTIONS (1)
  - Fatigue [Unknown]

NARRATIVE: CASE EVENT DATE: 20150129
